FAERS Safety Report 8085700 (Version 3)
Quarter: 2015Q1

REPORT INFORMATION
  Report Type: Spontaneous
  Country: JP (occurrence: JP)
  Receive Date: 20110811
  Receipt Date: 20150324
  Transmission Date: 20150721
  Serious: Yes (Death)
  Sender: FDA-Public Use
  Company Number: JP-PFIZER INC-2011179291

PATIENT
  Age: 64 Year
  Sex: Male
  Weight: 64.1 kg

DRUGS (6)
  1. GLUFAST [Concomitant]
     Active Substance: MITIGLINIDE
  2. ADALAT [Concomitant]
     Active Substance: NIFEDIPINE
  3. SUTENT [Suspect]
     Active Substance: SUNITINIB MALATE
     Indication: RENAL CELL CARCINOMA
     Dosage: 37.5 MG, 1X/DAY
     Route: 048
     Dates: start: 20110713, end: 20110714
  4. EUGLUCON [Concomitant]
     Active Substance: GLYBURIDE
  5. MICARDIS [Concomitant]
     Active Substance: TELMISARTAN
  6. INSULIN [Concomitant]
     Active Substance: INSULIN NOS

REACTIONS (4)
  - Disease progression [Fatal]
  - Cardiac arrest [Fatal]
  - Renal cell carcinoma [Fatal]
  - Respiratory failure [Fatal]

NARRATIVE: CASE EVENT DATE: 20110714
